FAERS Safety Report 8212581-0 (Version None)
Quarter: 2012Q1

REPORT INFORMATION
  Report Type: 
  Country: None (occurrence: None)
  Receive Date: 20120229
  Receipt Date: 20110803
  Transmission Date: 20120608
  Serious: Yes (Hospitalization)
  Sender: FDA-Public Use
  Company Number: 329753

PATIENT
  Age: 51 Year
  Sex: Male

DRUGS (1)
  1. NOVOLIN N [Suspect]
     Indication: DIABETES MELLITUS
     Dosage: SLIDING SCALE, SUBCUTANEOUS
     Route: 058

REACTIONS (4)
  - NIGHT SWEATS [None]
  - BLOOD GLUCOSE FLUCTUATION [None]
  - DRUG DOSE OMISSION [None]
  - BLOOD GLUCOSE INCREASED [None]
